FAERS Safety Report 26010324 (Version 1)
Quarter: 2025Q4

REPORT INFORMATION
  Report Type: Spontaneous
  Country: US (occurrence: US)
  Receive Date: 20251107
  Receipt Date: 20251107
  Transmission Date: 20260117
  Serious: Yes (Other)
  Sender: COSETTE PHARMACEUTICALS INC
  Company Number: US-COSETTE-CP2025US001072

PATIENT
  Age: 25 Year
  Sex: Male

DRUGS (2)
  1. CLOMIPHENE CITRATE [Suspect]
     Active Substance: CLOMIPHENE CITRATE
     Indication: Blood testosterone decreased
     Route: 065
  2. FANAPT [Suspect]
     Active Substance: ILOPERIDONE
     Indication: Product used for unknown indication
     Route: 065

REACTIONS (3)
  - Retrograde ejaculation [Unknown]
  - Prostatomegaly [Unknown]
  - Off label use [Unknown]
